FAERS Safety Report 8606823 (Version 3)
Quarter: 2014Q1

REPORT INFORMATION
  Report Type: Spontaneous
  Country: US (occurrence: US)
  Receive Date: 20120611
  Receipt Date: 20140108
  Transmission Date: 20141002
  Serious: Yes (Hospitalization)
  Sender: FDA-Public Use
  Company Number: US-ASTRAZENECA-2012SE34467

PATIENT
  Age: 742 Month
  Sex: Female

DRUGS (17)
  1. NEXIUM [Suspect]
     Indication: GASTROOESOPHAGEAL REFLUX DISEASE
     Dosage: DAILY
     Route: 048
     Dates: start: 200203, end: 201002
  2. NEXIUM [Suspect]
     Indication: GASTROOESOPHAGEAL REFLUX DISEASE
     Route: 048
     Dates: start: 20020402
  3. NEXIUM [Suspect]
     Indication: GASTROOESOPHAGEAL REFLUX DISEASE
     Route: 048
     Dates: start: 20100110
  4. PRILOSEC [Suspect]
     Route: 048
  5. TRIAM/HCTZ [Concomitant]
     Dosage: 37.5/25 MG DAILY
     Dates: start: 20020228
  6. LOSARTAN [Concomitant]
  7. LANSOPRAZOLE [Concomitant]
     Dates: start: 20100512
  8. LEVOTHYROXINE [Concomitant]
  9. SIMVASTATIN [Concomitant]
  10. MELOXICAM [Concomitant]
  11. FUROSEMIDE [Concomitant]
  12. BABY ASPIRIN [Concomitant]
  13. GLUCOSAMINE CHRONDROITIN [Concomitant]
  14. HYDROCO/APAP [Concomitant]
  15. TRAMADOL HCL [Concomitant]
  16. DIOVAN [Concomitant]
     Dates: start: 20101229
  17. LIPITOR [Concomitant]
     Dates: start: 20020128

REACTIONS (8)
  - Carpal tunnel syndrome [Unknown]
  - Osteoporosis [Unknown]
  - Foot fracture [Unknown]
  - Ingrowing nail [Unknown]
  - Cataract [Unknown]
  - Arthritis [Unknown]
  - Diabetes mellitus [Unknown]
  - Hypothyroidism [Unknown]
